FAERS Safety Report 9010899 (Version 1)
Quarter: 2013Q1

REPORT INFORMATION
  Report Type: Report from Study
  Country: US (occurrence: US)
  Receive Date: 20130109
  Receipt Date: 20130109
  Transmission Date: 20140127
  Serious: Yes (Hospitalization)
  Sender: FDA-Public Use
  Company Number: US-JNJFOC-20130101773

PATIENT
  Age: 15 Year
  Sex: Female
  Weight: 64.4 kg

DRUGS (3)
  1. REMICADE [Suspect]
     Indication: INFLAMMATORY BOWEL DISEASE
     Route: 042
     Dates: start: 20090707
  2. ATIVAN [Concomitant]
  3. TYLENOL PM [Concomitant]

REACTIONS (2)
  - Intestinal obstruction [Recovered/Resolved]
  - Small intestinal obstruction [Recovered/Resolved]
